FAERS Safety Report 10246580 (Version 2)
Quarter: 2014Q2

REPORT INFORMATION
  Report Type: Spontaneous
  Country: US (occurrence: US)
  Receive Date: 20140619
  Receipt Date: 20140625
  Transmission Date: 20141212
  Serious: Yes (Other)
  Sender: FDA-Public Use
  Company Number: US-ASTELLAS-2014US006949

PATIENT
  Age: 77 Year
  Sex: Male

DRUGS (3)
  1. XTANDI [Suspect]
     Indication: PROSTATE CANCER METASTATIC
     Route: 065
     Dates: start: 20140218
  2. XTANDI [Suspect]
     Route: 065
     Dates: start: 20140418
  3. XTANDI [Suspect]
     Route: 065
     Dates: end: 20140430

REACTIONS (12)
  - Visual impairment [Unknown]
  - Adverse drug reaction [Unknown]
  - Bone disorder [Unknown]
  - Joint stiffness [Unknown]
  - Activities of daily living impaired [Unknown]
  - Somnolence [Unknown]
  - Decreased appetite [Unknown]
  - Weight decreased [Unknown]
  - Insomnia [Unknown]
  - Asthenia [Unknown]
  - Musculoskeletal stiffness [Unknown]
  - Fatigue [Unknown]
